FAERS Safety Report 8805093 (Version 1)
Quarter: 2012Q4

REPORT INFORMATION
  Report Type: 
  Country: US (occurrence: US)
  Receive Date: 20120924
  Receipt Date: 20120924
  Transmission Date: 20130627
  Serious: Yes (Other)
  Sender: FDA-Public Use
  Company Number: US-ELI_LILLY_AND_COMPANY-US201209004806

PATIENT
  Age: 42 Year
  Sex: Male

DRUGS (1)
  1. AXIRON [Suspect]
     Indication: HYPOGONADISM
     Dosage: 60 mg, qd
     Route: 065
     Dates: start: 2012

REACTIONS (1)
  - Angina pectoris [Unknown]
